FAERS Safety Report 17564203 (Version 4)
Quarter: 2022Q3

REPORT INFORMATION
  Report Type: Report from Study
  Country: US (occurrence: US)
  Receive Date: 20200320
  Receipt Date: 20220922
  Transmission Date: 20221027
  Serious: No
  Sender: FDA-Public Use
  Company Number: None

PATIENT
  Age: 22 Year
  Sex: Female

DRUGS (2)
  1. ILARIS [Suspect]
     Active Substance: CANAKINUMAB
     Indication: Cryopyrin associated periodic syndrome
     Dosage: 150 MG (EVERY 8 WEEK)
     Route: 058
     Dates: start: 20131122
  2. ILARIS [Suspect]
     Active Substance: CANAKINUMAB
     Indication: Rheumatic disorder
     Dosage: 150 MG, QMO
     Route: 058
     Dates: start: 20131122

REACTIONS (4)
  - Influenza like illness [Unknown]
  - Pyrexia [Unknown]
  - Chills [Unknown]
  - Nasopharyngitis [Unknown]

NARRATIVE: CASE EVENT DATE: 20200323
